FAERS Safety Report 8521347-3 (Version None)
Quarter: 2012Q3

REPORT INFORMATION
  Report Type: 
  Country: None (occurrence: None)
  Receive Date: 20120712
  Receipt Date: 20120712
  Transmission Date: 20120928
  Serious: Yes (Other)
  Sender: FDA-Public Use
  Company Number: None

PATIENT
  Age: 46 Year
  Sex: Female
  Weight: 85.2762 kg

DRUGS (1)
  1. METRONIDAZOLE [Suspect]
     Indication: DIVERTICULITIS
     Dosage: 1 TABLET TWICE A DAY PO  ONCE AT 9:00A.M.
     Route: 048
     Dates: start: 20120709, end: 20120709

REACTIONS (2)
  - SENSATION OF HEAVINESS [None]
  - PARAESTHESIA [None]
